FAERS Safety Report 4916585-2 (Version None)
Quarter: 2006Q1

REPORT INFORMATION
  Report Type: 
  Country: None (occurrence: None)
  Receive Date: 20060220
  Receipt Date: 20060215
  Transmission Date: 20060701
  Serious: Yes (Other)
  Sender: FDA-Public Use
  Company Number: US-GLAXOSMITHKLINE-A0594204A

PATIENT
  Age: 57 Year
  Sex: Female

DRUGS (5)
  1. IMITREX [Suspect]
     Indication: MIGRAINE
     Route: 058
     Dates: start: 19950101
  2. IMITREX [Suspect]
     Route: 065
     Dates: start: 19950101
  3. LAMICTAL [Concomitant]
  4. TOPAMAX [Concomitant]
  5. FLEXERIL [Concomitant]

REACTIONS (2)
  - DRUG DEPENDENCE [None]
  - MIGRAINE [None]
